FAERS Safety Report 7372025-8 (Version None)
Quarter: 2011Q1

REPORT INFORMATION
  Report Type: 
  Country: None (occurrence: None)
  Receive Date: 20110324
  Receipt Date: 20110317
  Transmission Date: 20110831
  Serious: Yes (Other)
  Sender: FDA-Public Use
  Company Number: PHHY2010US66006

PATIENT
  Sex: Female
  Weight: 81.633 kg

DRUGS (14)
  1. EXTAVIA [Suspect]
     Dosage: 0.25 MG, QOD
     Route: 058
     Dates: start: 20100901
  2. LORTAB [Concomitant]
     Dosage: UNK
  3. VITAMIN D [Concomitant]
  4. PERCOCET [Concomitant]
  5. DEPAKOTE [Concomitant]
  6. EXTAVIA [Suspect]
     Indication: MULTIPLE SCLEROSIS
     Dosage: 0.062 MG, QOD
     Route: 058
     Dates: start: 20100930
  7. NEURONTIN [Concomitant]
  8. DIURETICS [Concomitant]
  9. DITROPAN [Concomitant]
  10. ASPIRIN [Concomitant]
  11. FOSAMAX [Concomitant]
  12. FLEXERIL [Concomitant]
  13. NAPROSYN [Concomitant]
  14. DETROL [Concomitant]

REACTIONS (5)
  - DYSSTASIA [None]
  - FATIGUE [None]
  - NAUSEA [None]
  - DIARRHOEA [None]
  - DIZZINESS [None]
